FAERS Safety Report 10678268 (Version 1)
Quarter: 2014Q4

REPORT INFORMATION
  Report Type: Spontaneous
  Country: US (occurrence: US)
  Receive Date: 20141229
  Receipt Date: 20141229
  Transmission Date: 20150529
  Serious: Yes (Death, Hospitalization)
  Sender: FDA-Public Use
  Company Number: PHHY2014US168852

PATIENT
  Age: 47 Year
  Sex: Male

DRUGS (19)
  1. AZATHIOPRINE. [Suspect]
     Active Substance: AZATHIOPRINE
     Indication: PEMPHIGUS
     Dosage: 50 MG, QD
     Route: 065
  2. AZATHIOPRINE. [Suspect]
     Active Substance: AZATHIOPRINE
     Dosage: 100 MG, QD
     Route: 065
  3. MYCOPHENOLATE MOFETIL. [Concomitant]
     Active Substance: MYCOPHENOLATE MOFETIL
     Dosage: 2 G, QD
     Route: 065
  4. PREDNISONE. [Suspect]
     Active Substance: PREDNISONE
     Dosage: 45 MG, QD
     Route: 048
  5. SOLU-MEDROL [Concomitant]
     Active Substance: METHYLPREDNISOLONE SODIUM SUCCINATE
     Dosage: 80 MG, QD
     Route: 042
  6. MYCOPHENOLATE MOFETIL. [Concomitant]
     Active Substance: MYCOPHENOLATE MOFETIL
     Indication: PRODUCT USED FOR UNKNOWN INDICATION
     Dosage: 1 G, QD
     Route: 065
  7. SOLU-MEDROL [Concomitant]
     Active Substance: METHYLPREDNISOLONE SODIUM SUCCINATE
     Indication: PRODUCT USED FOR UNKNOWN INDICATION
     Dosage: 80 MG, QD
     Route: 042
  8. COLISTIMETHATE [Concomitant]
     Active Substance: COLISTIMETHATE SODIUM
     Indication: PRODUCT USED FOR UNKNOWN INDICATION
     Dosage: 325 MG, BID
     Route: 065
  9. PREDNISONE. [Suspect]
     Active Substance: PREDNISONE
     Indication: PEMPHIGUS
     Dosage: 60 MG, QD
     Route: 048
  10. MINOCYCLINE [Concomitant]
     Active Substance: MINOCYCLINE\MINOCYCLINE HYDROCHLORIDE
     Indication: SEPSIS
     Route: 065
  11. RITUXIMAB [Concomitant]
     Active Substance: RITUXIMAB
     Indication: PRODUCT USED FOR UNKNOWN INDICATION
     Dosage: 1000 MG, UNK
     Route: 041
  12. CLOBETASOL [Concomitant]
     Active Substance: CLOBETASOL
     Indication: PRODUCT USED FOR UNKNOWN INDICATION
     Route: 061
  13. DEXAMETHASONE. [Concomitant]
     Active Substance: DEXAMETHASONE
     Indication: PRODUCT USED FOR UNKNOWN INDICATION
     Dosage: 0.5 MG/5 ML
     Route: 065
  14. VANCOMYCIN [Suspect]
     Active Substance: VANCOMYCIN
     Indication: PEMPHIGUS
     Route: 065
  15. TOBRAMYCIN. [Suspect]
     Active Substance: TOBRAMYCIN
     Indication: PEMPHIGUS
     Route: 065
  16. FLUOCINONIDE. [Concomitant]
     Active Substance: FLUOCINONIDE
     Indication: PRODUCT USED FOR UNKNOWN INDICATION
     Route: 065
  17. PREDNISONE. [Suspect]
     Active Substance: PREDNISONE
     Dosage: 1 MG/KG, QD
     Route: 048
  18. COLISTIMETHATE [Concomitant]
     Active Substance: COLISTIMETHATE SODIUM
     Dosage: 150 MG, Q6H
     Route: 045
  19. RITUXIMAB [Concomitant]
     Active Substance: RITUXIMAB
     Dosage: 375 MG/M2, UNK
     Route: 065

REACTIONS (15)
  - Wound dehiscence [Unknown]
  - Dyspnoea [Unknown]
  - Hypotension [Unknown]
  - Fungal sepsis [Unknown]
  - Respiratory disorder [Unknown]
  - Pseudomonas infection [Unknown]
  - Pyrexia [Unknown]
  - Mental status changes [Unknown]
  - Leukopenia [Unknown]
  - Death [Fatal]
  - Acute kidney injury [Unknown]
  - Delirium [Unknown]
  - Large intestine perforation [Unknown]
  - Acinetobacter infection [Unknown]
  - Bacteraemia [Unknown]
